FAERS Safety Report 14893643 (Version 1)
Quarter: 2018Q2

REPORT INFORMATION
  Report Type: Report from Study
  Country: US (occurrence: US)
  Receive Date: 20180514
  Receipt Date: 20180514
  Transmission Date: 20180711
  Serious: Yes (Death, Other)
  Sender: FDA-Public Use
  Company Number: US-APOPHARMA-2018AP013163

PATIENT
  Sex: Female
  Weight: 88 kg

DRUGS (2)
  1. FERRIPROX [Suspect]
     Active Substance: DEFERIPRONE
     Indication: HAEMOCHROMATOSIS
     Dosage: 11.4 MG/KG, TID
     Route: 048
     Dates: start: 20161014
  2. FERRIPROX [Suspect]
     Active Substance: DEFERIPRONE
     Indication: END STAGE RENAL DISEASE

REACTIONS (1)
  - Death [Fatal]
